FAERS Safety Report 5672409-X (Version None)
Quarter: 2008Q2

REPORT INFORMATION
  Report Type: 
  Country: None (occurrence: None)
  Receive Date: 20080219
  Receipt Date: 20071101
  Transmission Date: 20081010
  Serious: No
  Sender: FDA-Public Use
  Company Number: TPA2007A02253

PATIENT
  Age: 74 Year
  Sex: Male
  Weight: 95.2554 kg

DRUGS (23)
  1. ROZEREM [Suspect]
     Indication: INITIAL INSOMNIA
     Dosage: 8 MG, QHS, PER ORAL
     Route: 048
     Dates: start: 20071029
  2. OXYCONTIN [Concomitant]
  3. PERCOCET [Concomitant]
  4. XOPENEX [Concomitant]
  5. ALBUTEROL [Concomitant]
  6. SPIRIVA [Concomitant]
  7. ASETLIN (AZELASTINE) [Concomitant]
  8. NASAL RINSE (SODIUM CHLORIDE) [Concomitant]
  9. PREDNISONE TAB [Concomitant]
  10. SINGULAIR [Concomitant]
  11. GUAIFENESIN [Concomitant]
  12. NORVASC [Concomitant]
  13. ASPIRIN [Concomitant]
  14. LECITHIN (LECITHIN) [Concomitant]
  15. BENADRYL [Concomitant]
  16. FLEXERIL [Concomitant]
  17. NEXIUM (ESOMEPRZOLE MAGNESIUM) [Concomitant]
  18. FLOMAX [Concomitant]
  19. ADOVART (DUTASTERIDE) [Concomitant]
  20. CALMME (ALL OTHER THERAPEUTIC PRODUCTS) [Concomitant]
  21. ANDROGEL [Concomitant]
  22. CALCIUM (CALCIUM) [Concomitant]
  23. VITAMIN D [Concomitant]

REACTIONS (1)
  - HYPERSOMNIA [None]
